FAERS Safety Report 6906395-9 (Version None)
Quarter: 2010Q3

REPORT INFORMATION
  Report Type: 
  Country: None (occurrence: None)
  Receive Date: 20100804
  Receipt Date: 20100727
  Transmission Date: 20110219
  Serious: Yes (Other)
  Sender: FDA-Public Use
  Company Number: A0873785A

PATIENT
  Sex: Female

DRUGS (1)
  1. AVANDIA [Suspect]
     Dosage: 4MG PER DAY
     Route: 048
     Dates: start: 20070429, end: 20070615

REACTIONS (8)
  - ANXIETY [None]
  - COUGH [None]
  - HEADACHE [None]
  - HEART RATE INCREASED [None]
  - NAUSEA [None]
  - SWELLING [None]
  - VISUAL IMPAIRMENT [None]
  - WEIGHT INCREASED [None]
